FAERS Safety Report 22028887 (Version 1)
Quarter: 2023Q1

REPORT INFORMATION
  Report Type: Spontaneous
  Country: CN (occurrence: CN)
  Receive Date: 20230223
  Receipt Date: 20230223
  Transmission Date: 20230418
  Serious: Yes (Other)
  Sender: FDA-Public Use
  Company Number: CN-JNJFOC-20230247216

PATIENT
  Age: 73 Year
  Sex: Female
  Weight: 58 kg

DRUGS (3)
  1. IMODIUM [Suspect]
     Active Substance: LOPERAMIDE HYDROCHLORIDE
     Indication: Diarrhoea
     Route: 048
     Dates: start: 20230124, end: 20230126
  2. IMODIUM [Suspect]
     Active Substance: LOPERAMIDE HYDROCHLORIDE
     Route: 048
  3. BIFIDOBACTERIUM SPP. [Suspect]
     Active Substance: BIFIDOBACTERIUM SPP.
     Indication: Frequent bowel movements
     Route: 048
     Dates: start: 20230124

REACTIONS (2)
  - Intestinal obstruction [Recovering/Resolving]
  - Abdominal distension [Recovered/Resolved]

NARRATIVE: CASE EVENT DATE: 20230126
